FAERS Safety Report 5249901-5 (Version None)
Quarter: 2007Q1

REPORT INFORMATION
  Report Type: 
  Country: None (occurrence: None)
  Receive Date: 20070223
  Receipt Date: 20070207
  Transmission Date: 20070707
  Serious: Yes (Other)
  Sender: FDA-Public Use
  Company Number: 235776

PATIENT
  Age: 70 Year
  Sex: Female

DRUGS (8)
  1. HERCEPTIN [Suspect]
     Indication: BREAST CANCER METASTATIC
     Dosage: 115 MG, UNK, INTRAVENOUS
     Route: 042
     Dates: start: 20061107, end: 20070115
  2. VINORELBINE [Concomitant]
  3. OMEPRAZOLE [Concomitant]
  4. NOVAMINSULFON (DIPYRONE) [Concomitant]
  5. GABAPENTIN [Concomitant]
  6. MCP (METOCLOPRAMIDE HYDROCHLORIDE) [Concomitant]
  7. TRAMADOL HCL [Concomitant]
  8. ERYTHROMYCIN [Concomitant]

REACTIONS (2)
  - CARDIOMEGALY [None]
  - EJECTION FRACTION DECREASED [None]
